FAERS Safety Report 8487254-X (Version None)
Quarter: 2012Q3

REPORT INFORMATION
  Report Type: 
  Country: None (occurrence: None)
  Receive Date: 20120705
  Receipt Date: 20120626
  Transmission Date: 20120928
  Serious: No
  Sender: FDA-Public Use
  Company Number: US-BIOGENIDEC-2012BI000171

PATIENT
  Sex: Female

DRUGS (2)
  1. TYSABRI [Suspect]
     Indication: MULTIPLE SCLEROSIS
     Route: 042
     Dates: start: 20111130
  2. AMPYRA [Concomitant]
     Indication: MULTIPLE SCLEROSIS
     Dates: start: 20110317

REACTIONS (19)
  - GENERAL SYMPTOM [None]
  - ABASIA [None]
  - HEADACHE [None]
  - PYREXIA [None]
  - SINUSITIS [None]
  - INSOMNIA [None]
  - DISTURBANCE IN ATTENTION [None]
  - MEMORY IMPAIRMENT [None]
  - WEIGHT DECREASED [None]
  - DEPRESSION [None]
  - BACK PAIN [None]
  - DIZZINESS [None]
  - BALANCE DISORDER [None]
  - LUNG INFECTION [None]
  - ASTHENIA [None]
  - VISUAL IMPAIRMENT [None]
  - NAUSEA [None]
  - FATIGUE [None]
  - DECREASED APPETITE [None]
